FAERS Safety Report 25461083 (Version 1)
Quarter: 2025Q2

REPORT INFORMATION
  Report Type: Report from Study
  Country: US (occurrence: US)
  Receive Date: 20250620
  Receipt Date: 20250620
  Transmission Date: 20250716
  Serious: No
  Sender: MALLINCKRODT
  Company Number: US-MALLINCKRODT-MNK202502163

PATIENT
  Age: 67 Year
  Sex: Female

DRUGS (5)
  1. CORTICOTROPIN [Suspect]
     Active Substance: CORTICOTROPIN
     Indication: Keratitis
     Route: 058
     Dates: start: 20250312
  2. HUMIRA [Concomitant]
     Active Substance: ADALIMUMAB
  3. VITAMINS NOS [Concomitant]
     Active Substance: VITAMINS
  4. FISH OIL [Concomitant]
     Active Substance: FISH OIL
  5. YUFLYMA [ADALIMUMAB AATY] [Concomitant]

REACTIONS (4)
  - Headache [Unknown]
  - Initial insomnia [Recovering/Resolving]
  - Irritability [Unknown]
  - Drug ineffective [Unknown]

NARRATIVE: CASE EVENT DATE: 20250101
